FAERS Safety Report 10211417 (Version 2)
Quarter: 2014Q2

REPORT INFORMATION
  Report Type: Report from Study
  Country: AU (occurrence: AU)
  Receive Date: 20140602
  Receipt Date: 20140630
  Transmission Date: 20141212
  Serious: Yes (Hospitalization)
  Sender: FDA-Public Use
  Company Number: AU-JNJFOC-20140512282

PATIENT
  Age: 62 Year
  Sex: Male

DRUGS (6)
  1. ZYTIGA [Suspect]
     Indication: PROSTATE CANCER
     Route: 048
     Dates: start: 20130926
  2. ZYTIGA [Suspect]
     Indication: PROSTATE CANCER
     Route: 048
     Dates: start: 20131008, end: 20140304
  3. ZYTIGA [Suspect]
     Indication: PROSTATE CANCER
     Route: 048
     Dates: start: 20130909
  4. DEGARELIX [Suspect]
     Indication: PROSTATE CANCER
     Route: 058
     Dates: start: 20130909, end: 20140207
  5. BICALUTAMIDE [Suspect]
     Indication: PROSTATE CANCER
     Route: 048
     Dates: start: 20130909, end: 20140303
  6. PREDNISONE [Suspect]
     Indication: PROSTATE CANCER
     Route: 048
     Dates: start: 20130909, end: 20140303

REACTIONS (1)
  - Post procedural haematoma [Recovered/Resolved]
